FAERS Safety Report 21756144 (Version 3)
Quarter: 2023Q2

REPORT INFORMATION
  Report Type: Spontaneous
  Country: US (occurrence: US)
  Receive Date: 20221220
  Receipt Date: 20230517
  Transmission Date: 20230721
  Serious: Yes (Other)
  Sender: FDA-Public Use
  Company Number: US-BoehringerIngelheim-2022-BI-208894

PATIENT
  Age: 80 Year
  Sex: Female

DRUGS (2)
  1. SPIRIVA RESPIMAT [Suspect]
     Active Substance: TIOTROPIUM BROMIDE
     Indication: Chronic obstructive pulmonary disease
     Dosage: 2 PUFFS IN THEMORNING AND 2 PUFFS AT NIGHT 1605561, 1605578, AND 1605581
     Route: 055
     Dates: start: 20221209
  2. SYMBICORT [Concomitant]
     Active Substance: BUDESONIDE\FORMOTEROL FUMARATE DIHYDRATE
     Indication: Product used for unknown indication
     Dosage: AT NIGHT

REACTIONS (6)
  - Lung neoplasm malignant [Unknown]
  - Product prescribing error [Unknown]
  - Dysphonia [Not Recovered/Not Resolved]
  - Intentional overdose [Unknown]
  - Product physical issue [Unknown]
  - Cough [Unknown]

NARRATIVE: CASE EVENT DATE: 20221201
